FAERS Safety Report 12111678 (Version 2)
Quarter: 2016Q1

REPORT INFORMATION
  Report Type: Report from Study
  Country: US (occurrence: US)
  Receive Date: 20160224
  Receipt Date: 20160311
  Transmission Date: 20160526
  Serious: Yes (Hospitalization)
  Sender: FDA-Public Use
  Company Number: US-BIOGEN-2013BI056499

PATIENT
  Age: 57 Year
  Sex: Female

DRUGS (8)
  1. AVONEX [Suspect]
     Active Substance: INTERFERON BETA-1A
     Route: 030
     Dates: start: 20081210
  2. AVONEX [Suspect]
     Active Substance: INTERFERON BETA-1A
     Indication: MULTIPLE SCLEROSIS
     Route: 030
     Dates: start: 20030501, end: 200308
  3. AVONEX [Suspect]
     Active Substance: INTERFERON BETA-1A
     Route: 030
     Dates: start: 201104, end: 201306
  4. GABAPENTIN. [Concomitant]
     Active Substance: GABAPENTIN
     Indication: MULTIPLE SCLEROSIS
     Route: 065
  5. AVONEX [Suspect]
     Active Substance: INTERFERON BETA-1A
     Route: 030
     Dates: start: 200906, end: 201104
  6. AVONEX [Suspect]
     Active Substance: INTERFERON BETA-1A
     Route: 030
     Dates: start: 20140801
  7. AVONEX [Suspect]
     Active Substance: INTERFERON BETA-1A
     Route: 030
     Dates: start: 201406
  8. AVONEX [Suspect]
     Active Substance: INTERFERON BETA-1A
     Route: 030
     Dates: end: 20151215

REACTIONS (11)
  - Ovarian cancer metastatic [Fatal]
  - Ovarian cancer recurrent [Unknown]
  - Abdominal mass [Unknown]
  - Headache [Recovered/Resolved]
  - Pain [Recovered/Resolved]
  - Hypoglycaemia [Unknown]
  - Alopecia [Unknown]
  - Hepatic failure [Fatal]
  - Hypertension [Recovered/Resolved]
  - White blood cell count decreased [Recovered/Resolved]
  - Injection site pain [Unknown]

NARRATIVE: CASE EVENT DATE: 20130609
